FAERS Safety Report 4507510-7 (Version None)
Quarter: 2004Q4

REPORT INFORMATION
  Report Type: 
  Country: None (occurrence: None)
  Receive Date: 20041123
  Receipt Date: 20041112
  Transmission Date: 20050328
  Serious: Yes (Hospitalization)
  Sender: FDA-Public Use
  Company Number: US-JNJFOC-20040703491

PATIENT
  Sex: Female
  Weight: 56.7 kg

DRUGS (13)
  1. INFLIXIMAB [Suspect]
     Route: 042
  2. INFLIXIMAB [Suspect]
     Route: 042
  3. INFLIXIMAB [Suspect]
     Route: 042
  4. INFLIXIMAB [Suspect]
     Route: 042
  5. INFLIXIMAB [Suspect]
     Route: 042
  6. INFLIXIMAB [Suspect]
     Route: 042
  7. INFLIXIMAB [Suspect]
     Route: 042
  8. INFLIXIMAB [Suspect]
     Route: 042
  9. INFLIXIMAB [Suspect]
     Indication: CROHN'S DISEASE
     Dosage: PATIENT RECIEVED 10 INFUSIONS OF INFLIXIMAB PRIOR TO TREAT
     Route: 042
  10. NARCOTIC ANALGESICS [Suspect]
     Indication: CROHN'S DISEASE
  11. ANTI-HISTAMINE TAB [Concomitant]
     Indication: PREMEDICATION
  12. STEROIDS [Concomitant]
     Indication: PREMEDICATION
  13. ACETAMINOPHEN [Concomitant]
     Indication: PREMEDICATION

REACTIONS (2)
  - ARTHRITIS [None]
  - RASH [None]
